FAERS Safety Report 11943070 (Version 1)
Quarter: 2016Q1

REPORT INFORMATION
  Report Type: Spontaneous
  Country: US (occurrence: US)
  Receive Date: 20160125
  Receipt Date: 20160125
  Transmission Date: 20160526
  Serious: No
  Sender: FDA-Public Use
  Company Number: US-UNITED THERAPEUTICS-UNT-2015-009918

PATIENT
  Age: 70 Year
  Sex: Female
  Weight: 58.96 kg

DRUGS (4)
  1. REMODULIN [Suspect]
     Active Substance: TREPROSTINIL
     Indication: PULMONARY ARTERIAL HYPERTENSION
     Dosage: 0.020 ?G/KG/MIN, CONTINUING
     Route: 058
     Dates: start: 20150310
  2. REMODULIN [Suspect]
     Active Substance: TREPROSTINIL
     Dosage: UNK
     Route: 058
  3. DIURETICS [Suspect]
     Active Substance: UNSPECIFIED INGREDIENT
     Indication: PRODUCT USED FOR UNKNOWN INDICATION
     Dosage: UNKNOWN
     Route: 065
  4. REMODULIN [Suspect]
     Active Substance: TREPROSTINIL
     Dosage: UNK
     Route: 058

REACTIONS (7)
  - Drug ineffective [Unknown]
  - Oedema peripheral [Not Recovered/Not Resolved]
  - Infusion site pain [Unknown]
  - Infusion site erythema [Unknown]
  - Blood count abnormal [Unknown]
  - Dyspnoea [Unknown]
  - Oxygen saturation decreased [Unknown]

NARRATIVE: CASE EVENT DATE: 20150310
